FAERS Safety Report 4395379-3 (Version None)
Quarter: 2004Q3

REPORT INFORMATION
  Report Type: 
  Country: None (occurrence: None)
  Receive Date: 20040707
  Receipt Date: 20040625
  Transmission Date: 20050211
  Serious: Yes (Life-Threatening, Other)
  Sender: FDA-Public Use
  Company Number: 2004043262

PATIENT
  Age: 63 Year
  Sex: Female

DRUGS (4)
  1. AMLODIPINE [Suspect]
     Indication: HYPERTENSION
     Dosage: 5 MG (5 MG, 1 IN 1 D), ORAL
     Route: 048
     Dates: start: 20040604, end: 20040607
  2. QUINAPRIL HCL [Concomitant]
  3. ATORVASTATIN CALCIUM [Concomitant]
  4. PRALIDOXIME (PRALIDOXIME) [Concomitant]

REACTIONS (2)
  - ANGIONEUROTIC OEDEMA [None]
  - STRIDOR [None]
